FAERS Safety Report 5824725-6 (Version None)
Quarter: 2008Q3

REPORT INFORMATION
  Report Type: 
  Country: None (occurrence: None)
  Receive Date: 20080722
  Receipt Date: 20080710
  Transmission Date: 20090109
  Serious: Yes (Hospitalization)
  Sender: FDA-Public Use
  Company Number: 2008BI017428

PATIENT
  Age: 60 Year
  Sex: Female
  Weight: 112.0385 kg

DRUGS (26)
  1. TYSABRI [Suspect]
     Indication: MULTIPLE SCLEROSIS
     Dosage: 300 MG;QM;IV
     Route: 042
     Dates: start: 20080110, end: 20080605
  2. ALBUTEROL [Concomitant]
  3. AZMACORT [Concomitant]
  4. BACLOFEN [Concomitant]
  5. CELEBREX [Concomitant]
  6. CRESTOR [Concomitant]
  7. LISINOPRIL [Concomitant]
  8. LYRICA [Concomitant]
  9. MACROBID [Concomitant]
  10. NEURONTIN [Concomitant]
  11. OXYTROL [Concomitant]
  12. K-DUR [Concomitant]
  13. PREMARIN [Concomitant]
  14. PRILOSEC [Concomitant]
  15. REQUIP [Concomitant]
  16. SPIRIVA [Concomitant]
  17. SYNTHROID [Concomitant]
  18. VESICARE [Concomitant]
  19. ASCORBIC ACID [Concomitant]
  20. VITAMIN D [Concomitant]
  21. VITAMIN E [Concomitant]
  22. CALCIUM [Concomitant]
  23. MAGNESIUM SULFATE [Concomitant]
  24. MULTI-VITAMIN [Concomitant]
  25. OXYGEN [Concomitant]
  26. COPAXONE [Concomitant]

REACTIONS (1)
  - ARTHRITIS INFECTIVE [None]
